FAERS Safety Report 7773558-2 (Version None)
Quarter: 2011Q3

REPORT INFORMATION
  Report Type: 
  Country: None (occurrence: None)
  Receive Date: 20110922
  Receipt Date: 20110916
  Transmission Date: 20111222
  Serious: Yes (Life-Threatening)
  Sender: FDA-Public Use
  Company Number: DK-BRISTOL-MYERS SQUIBB COMPANY-16067928

PATIENT
  Age: 34 Year
  Sex: Female
  Weight: 65 kg

DRUGS (9)
  1. NOXAFIL [Suspect]
     Indication: HEPATOSPLENIC CANDIDIASIS
     Route: 048
     Dates: start: 20071020, end: 20080125
  2. PANTOPRAZOLE SODIUM [Suspect]
  3. ACYCLOVIR [Suspect]
  4. ALLOPURINOL [Suspect]
     Dosage: TABLET
     Route: 048
  5. POTASSIUM CHLORIDE [Suspect]
     Route: 048
  6. CYTARABINE [Suspect]
  7. VOGALENE [Suspect]
  8. ETOPOSIDE [Suspect]
  9. ONDANSETRON [Suspect]

REACTIONS (2)
  - SINOATRIAL BLOCK [None]
  - ARRHYTHMIA [None]
